FAERS Safety Report 10397316 (Version 1)
Quarter: 2014Q3

REPORT INFORMATION
  Report Type: Spontaneous
  Country: IT (occurrence: IT)
  Receive Date: 20140820
  Receipt Date: 20140820
  Transmission Date: 20150326
  Serious: Yes (Death, Other)
  Sender: FDA-Public Use
  Company Number: PHHY2014IT098929

PATIENT
  Age: 82 Year
  Sex: Male

DRUGS (2)
  1. VINORELBINE [Suspect]
     Active Substance: VINORELBINE\VINORELBINE TARTRATE
     Indication: METASTASES TO PENIS
     Dosage: UNK
     Dates: start: 201207, end: 201212
  2. PAMIDRONATE [Suspect]
     Active Substance: PAMIDRONATE DISODIUM
     Indication: METASTASES TO PENIS
     Dosage: UNK
     Dates: start: 201207, end: 201212

REACTIONS (3)
  - Death [Fatal]
  - Metastases to penis [Unknown]
  - Malignant neoplasm progression [Unknown]
